FAERS Safety Report 7426902-X (Version None)
Quarter: 2011Q2

REPORT INFORMATION
  Report Type: 
  Country: None (occurrence: None)
  Receive Date: 20110420
  Receipt Date: 20110307
  Transmission Date: 20111010
  Serious: Yes (Hospitalization)
  Sender: FDA-Public Use
  Company Number: US-JNJFOC-20110303319

PATIENT
  Sex: Female
  Weight: 108.86 kg

DRUGS (17)
  1. REMICADE [Suspect]
     Indication: RHEUMATOID ARTHRITIS
     Route: 042
  2. ALLEGRA [Concomitant]
     Indication: PRURITUS
     Route: 048
  3. LEVOTHYROXINE SODIUM [Concomitant]
     Indication: HYPOTHYROIDISM
     Route: 048
  4. ADVAIR HFA [Concomitant]
     Indication: ASTHMA
     Route: 055
  5. CITALOPRAM [Concomitant]
     Indication: DEPRESSION
     Route: 048
  6. AMANTADINE HCL [Concomitant]
     Indication: RESTLESS LEGS SYNDROME
     Route: 048
  7. VITAMIN D2 [Concomitant]
     Indication: VITAMIN D DEFICIENCY
     Route: 048
  8. INSULIN HUMULIN [Concomitant]
     Indication: DIABETES MELLITUS
     Route: 058
  9. PROAIR HFA [Concomitant]
     Indication: ASTHMA
     Route: 055
  10. OMEPRAZOLE [Concomitant]
     Indication: GASTROOESOPHAGEAL REFLUX DISEASE
     Route: 048
  11. SINGULAIR [Concomitant]
     Indication: SINUS DISORDER
     Route: 048
  12. ZETIA [Concomitant]
     Indication: BLOOD CHOLESTEROL INCREASED
     Route: 048
  13. ENALAPRIL MALEATE [Concomitant]
     Indication: HYPERTENSION
     Route: 048
  14. REMICADE [Suspect]
     Route: 042
  15. GABAPENTIN [Concomitant]
     Indication: NEURALGIA
     Route: 048
  16. IBUPROFEN [Concomitant]
     Indication: ARTHRITIS
     Route: 048
  17. SINGULAIR [Concomitant]
     Indication: ASTHMA
     Route: 048

REACTIONS (4)
  - MENINGITIS [None]
  - URINARY TRACT INFECTION [None]
  - BRONCHITIS [None]
  - SINUSITIS [None]
